FAERS Safety Report 19706920 (Version 1)
Quarter: 2021Q3

REPORT INFORMATION
  Report Type: Spontaneous
  Country: US (occurrence: US)
  Receive Date: 20210816
  Receipt Date: 20210816
  Transmission Date: 20211014
  Serious: Yes (Hospitalization, Other)
  Sender: FDA-Public Use
  Company Number: None

PATIENT
  Age: 17 Year
  Sex: Male
  Weight: 72 kg

DRUGS (1)
  1. CLONAZEPAM. [Suspect]
     Active Substance: CLONAZEPAM
     Indication: MAJOR DEPRESSION
     Dosage: ?          QUANTITY:1 DISSOLVING WAFER;?
     Route: 060
     Dates: start: 20201228, end: 20210525

REACTIONS (6)
  - Muscle tightness [None]
  - Muscle rigidity [None]
  - Movement disorder [None]
  - Gait inability [None]
  - Withdrawal syndrome [None]
  - Hypertonia [None]

NARRATIVE: CASE EVENT DATE: 20210810
